FAERS Safety Report 5269655-6 (Version None)
Quarter: 2007Q1

REPORT INFORMATION
  Report Type: 
  Country: None (occurrence: None)
  Receive Date: 20070314
  Receipt Date: 20070301
  Transmission Date: 20070707
  Serious: Yes (Death)
  Sender: FDA-Public Use
  Company Number: 237489

PATIENT
  Age: 68 Year
  Sex: Male

DRUGS (5)
  1. MABTHERA (RITUXIMAB) CON FOR SOLUTION FOR INFUSION [Suspect]
     Indication: DRUG USE FOR UNKNOWN INDICATION
  2. GANCICLOVIR SODIUM [Suspect]
     Indication: DRUG USE FOR UNKNOWN INDICATION
  3. PROGRAF [Concomitant]
  4. FRAGMIN [Concomitant]
  5. MERONEM (MEROPENEM) [Concomitant]

REACTIONS (7)
  - DRUG LEVEL INCREASED [None]
  - HEPATIC FAILURE [None]
  - HYPOTENSION [None]
  - MULTI-ORGAN FAILURE [None]
  - NERVOUS SYSTEM DISORDER [None]
  - RENAL FAILURE [None]
  - SEPSIS [None]
